FAERS Safety Report 21060873 (Version 1)
Quarter: 2022Q3

REPORT INFORMATION
  Report Type: Spontaneous
  Country: US (occurrence: US)
  Receive Date: 20220709
  Receipt Date: 20220709
  Transmission Date: 20221027
  Serious: No
  Sender: FDA-Public Use
  Company Number: US-JNJFOC-20220657387

PATIENT
  Age: 37 Year
  Sex: Male

DRUGS (1)
  1. TREMFYA [Suspect]
     Active Substance: GUSELKUMAB
     Indication: Product used for unknown indication
     Route: 058
     Dates: start: 20211217

REACTIONS (4)
  - Psoriasis [Unknown]
  - Product dose omission issue [Unknown]
  - Memory impairment [Unknown]
  - Arthralgia [Unknown]

NARRATIVE: CASE EVENT DATE: 20220620
